FAERS Safety Report 4546129-9 (Version None)
Quarter: 2005Q1

REPORT INFORMATION
  Report Type: 
  Country: None (occurrence: None)
  Receive Date: 20050103
  Receipt Date: 20041223
  Transmission Date: 20050727
  Serious: Yes (Other)
  Sender: FDA-Public Use
  Company Number: HQWYE265428DEC04

PATIENT
  Age: 20 Year
  Sex: Female
  Weight: 44.95 kg

DRUGS (1)
  1. ALESSE [Suspect]
     Indication: CONTRACEPTION
     Dosage: 1 TABLET, ORAL
     Route: 048
     Dates: start: 20041114, end: 20041114

REACTIONS (2)
  - DRUG HYPERSENSITIVITY [None]
  - NERVOUSNESS [None]
